FAERS Safety Report 4664290-2 (Version None)
Quarter: 2005Q2

REPORT INFORMATION
  Report Type: 
  Country: None (occurrence: None)
  Receive Date: 20050516
  Receipt Date: 20050516
  Transmission Date: 20051028
  Serious: No
  Sender: FDA-Public Use
  Company Number: None

PATIENT
  Age: 83 Year
  Sex: Female
  Weight: 65.7716 kg

DRUGS (10)
  1. MOBIC [Suspect]
     Indication: ARTHRALGIA
     Dosage: 7.5MG PO Q DAY
     Route: 048
     Dates: start: 20050505
  2. MOBIC [Suspect]
     Indication: ARTHRITIS
     Dosage: 7.5MG PO Q DAY
     Route: 048
     Dates: start: 20050505
  3. PROTONIX [Concomitant]
  4. ZOCOR [Concomitant]
  5. FUROSEMIDE [Concomitant]
  6. POTASSIUM CHLORIDE [Concomitant]
  7. LOVENOX [Concomitant]
  8. LEVAQUIN [Concomitant]
  9. DOCUSATE SODIUM [Concomitant]
  10. FENTANYL [Concomitant]

REACTIONS (1)
  - RENAL FAILURE ACUTE [None]
